FAERS Safety Report 5388588-8 (Version None)
Quarter: 2007Q3

REPORT INFORMATION
  Report Type: 
  Country: None (occurrence: None)
  Receive Date: 20070716
  Receipt Date: 20070705
  Transmission Date: 20080115
  Serious: Yes (Hospitalization, Other)
  Sender: FDA-Public Use
  Company Number: BR-PFIZER INC-2007055447

PATIENT
  Sex: Female
  Weight: 75 kg

DRUGS (5)
  1. CLINDAMYCIN HCL [Suspect]
     Indication: INFECTION
     Route: 048
  2. CORENITEC [Concomitant]
     Route: 048
  3. OMEPRAZOLE [Concomitant]
     Route: 048
  4. FLUOXETINE [Concomitant]
     Route: 048
  5. CEPHALEXIN [Concomitant]

REACTIONS (8)
  - ANGIOPATHY [None]
  - ARTERIAL DISORDER [None]
  - ARTERIOSCLEROSIS [None]
  - FINGER AMPUTATION [None]
  - HYPERTENSION [None]
  - LEG AMPUTATION [None]
  - NAUSEA [None]
  - VOMITING [None]
